FAERS Safety Report 4997200-9 (Version None)
Quarter: 2006Q2

REPORT INFORMATION
  Report Type: 
  Country: None (occurrence: None)
  Receive Date: 20060509
  Receipt Date: 20060503
  Transmission Date: 20061013
  Serious: Yes (Hospitalization, Other)
  Sender: FDA-Public Use
  Company Number: MX-BRISTOL-MYERS SQUIBB COMPANY-13367560

PATIENT
  Age: 80 Year
  Sex: Male

DRUGS (1)
  1. TEQUIN [Suspect]
     Indication: PNEUMONIA
     Route: 048

REACTIONS (1)
  - HYPERGLYCAEMIA [None]
